FAERS Safety Report 4340629-2 (Version None)
Quarter: 2004Q2

REPORT INFORMATION
  Report Type: 
  Country: None (occurrence: None)
  Receive Date: 20040414
  Receipt Date: 20040401
  Transmission Date: 20050107
  Serious: Yes (Death, Life-Threatening)
  Sender: FDA-Public Use
  Company Number: HQWYE468408DEC03

PATIENT
  Age: 33 Year
  Sex: Male

DRUGS (8)
  1. RAPAMUNE [Suspect]
     Indication: PROPHYLAXIS AGAINST TRANSPLANT REJECTION
     Dosage: 2 MG 1X PER 1 DAY
     Dates: start: 19981230
  2. MYCOPHENOLATE MOFETIL (MYCOPHENOLATE MOFETIL, ) [Suspect]
     Indication: IMMUNOSUPPRESSION
     Dosage: 1 G 2X PER 1 DAY
     Dates: start: 20011215
  3. PREDNISOLONE [Suspect]
     Dosage: 5 MG 1X PER 1 DAY
     Dates: start: 20021122
  4. PERINDOPRIL [Concomitant]
  5. PRAVASTATIN [Suspect]
  6. CALCITRIOL [Concomitant]
  7. BACTRIM [Concomitant]
  8. GABAPENTIN [Concomitant]

REACTIONS (28)
  - ABDOMINAL PAIN [None]
  - ASCITES [None]
  - BACK PAIN [None]
  - BRADYCARDIA [None]
  - CARDIAC ARREST [None]
  - CARDIAC FAILURE [None]
  - CARDIOMEGALY [None]
  - COLITIS [None]
  - CYTOMEGALOVIRUS COLITIS [None]
  - CYTOMEGALOVIRUS INFECTION [None]
  - DIARRHOEA [None]
  - DIZZINESS [None]
  - DUODENAL ULCER [None]
  - DYSPNOEA [None]
  - ELECTROMECHANICAL DISSOCIATION [None]
  - GASTRITIS [None]
  - HEART TRANSPLANT REJECTION [None]
  - HEPATIC CONGESTION [None]
  - HEPATIC FIBROSIS [None]
  - HEPATIC NECROSIS [None]
  - HYPOTENSION [None]
  - LYMPHOCYTIC INFILTRATION [None]
  - NAUSEA [None]
  - OXYGEN SATURATION DECREASED [None]
  - PLEURAL EFFUSION [None]
  - PLEURISY [None]
  - PULMONARY CONGESTION [None]
  - VIRAL MYOCARDITIS [None]
